FAERS Safety Report 18073687 (Version 2)
Quarter: 2020Q3

REPORT INFORMATION
  Report Type: Report from Study
  Country: US (occurrence: US)
  Receive Date: 20200727
  Receipt Date: 20200811
  Transmission Date: 20201103
  Serious: Yes (Death, Hospitalization)
  Sender: FDA-Public Use
  Company Number: US-EISAI MEDICAL RESEARCH-EC-2020-072606

PATIENT
  Age: 67 Year
  Sex: Male

DRUGS (2)
  1. LENVIMA [Suspect]
     Active Substance: LENVATINIB
     Route: 048
     Dates: start: 2020, end: 20200803
  2. LENVIMA [Suspect]
     Active Substance: LENVATINIB
     Indication: HEPATOCELLULAR CARCINOMA
     Route: 048
     Dates: start: 20200318, end: 202007

REACTIONS (11)
  - Death [Fatal]
  - Blood glucose decreased [Unknown]
  - Decreased appetite [Recovering/Resolving]
  - Blood pressure decreased [Unknown]
  - Weight decreased [Recovered/Resolved]
  - Vomiting [Unknown]
  - Internal haemorrhage [Recovering/Resolving]
  - Fatigue [Not Recovered/Not Resolved]
  - Nephrolithiasis [Recovered/Resolved]
  - Product packaging difficult to open [Recovered/Resolved]
  - Alpha 1 foetoprotein decreased [Unknown]

NARRATIVE: CASE EVENT DATE: 2020
